FAERS Safety Report 8407399-X (Version None)
Quarter: 2012Q2

REPORT INFORMATION
  Report Type: 
  Country: None (occurrence: None)
  Receive Date: 20120604
  Receipt Date: 20120525
  Transmission Date: 20120825
  Serious: Yes (Disabling)
  Sender: FDA-Public Use
  Company Number: JP-ASTRAZENECA-2012SE13292

PATIENT
  Age: 87 Year
  Sex: Male

DRUGS (9)
  1. TENORMIN [Suspect]
     Route: 048
  2. ADALAT [Suspect]
     Route: 048
  3. ALDACTONE [Suspect]
     Route: 048
  4. LASIX [Suspect]
     Route: 048
  5. DOXAZOSIN MESYLATE [Suspect]
     Route: 048
  6. SPELEAR [Suspect]
     Route: 048
  7. MUCOSTA [Suspect]
     Route: 048
  8. ROCALTROL [Suspect]
     Route: 048
  9. SOLETON [Suspect]
     Route: 048

REACTIONS (1)
  - LUNG DISORDER [None]
